FAERS Safety Report 4639298-3 (Version None)
Quarter: 2005Q2

REPORT INFORMATION
  Report Type: 
  Country: None (occurrence: None)
  Receive Date: 20050418
  Receipt Date: 20050405
  Transmission Date: 20051028
  Serious: Yes (Death)
  Sender: FDA-Public Use
  Company Number: USA-2005-0019662

PATIENT
  Age: 31 Year
  Sex: Male

DRUGS (4)
  1. OXYCODONE HCL [Suspect]
  2. AMPHETAMINE (AMFETAMINE SULFATE) [Suspect]
  3. ALCOHOL (ETHANOL) [Suspect]
  4. ANTIHYPERTENSIVES [Concomitant]

REACTIONS (7)
  - ACCIDENTAL DEATH [None]
  - ACCIDENTAL OVERDOSE [None]
  - ALCOHOL USE [None]
  - ARTERIAL OCCLUSIVE DISEASE [None]
  - CARDIAC FAILURE [None]
  - INJURY ASPHYXIATION [None]
  - MULTIPLE DRUG OVERDOSE [None]
